FAERS Safety Report 8995689 (Version 1)
Quarter: 2013Q1

REPORT INFORMATION
  Report Type: Spontaneous
  Country: US (occurrence: US)
  Receive Date: 20130103
  Receipt Date: 20130103
  Transmission Date: 20140127
  Serious: No
  Sender: FDA-Public Use
  Company Number: US-ABBOTT-12P-163-0967849-00

PATIENT
  Sex: Female
  Weight: 51.76 kg

DRUGS (2)
  1. SYNTHROID [Suspect]
     Indication: HYPOTHYROIDISM
     Dosage: ONCE A DAY, SKIP WEDNESDAY AND SUNDAY
     Dates: start: 1992
  2. SYNTHROID [Suspect]
     Indication: HYPOTHYROIDISM
     Dosage: ONCE A DAY, WEDNESDAY AND SUNDAY ONLY
     Dates: start: 1992

REACTIONS (4)
  - Abdominal discomfort [Not Recovered/Not Resolved]
  - Abdominal pain [Not Recovered/Not Resolved]
  - Abdominal discomfort [Not Recovered/Not Resolved]
  - Gastritis [Not Recovered/Not Resolved]
